FAERS Safety Report 5637436-7 (Version None)
Quarter: 2008Q1

REPORT INFORMATION
  Report Type: 
  Country: None (occurrence: None)
  Receive Date: 20080225
  Receipt Date: 20080221
  Transmission Date: 20080703
  Serious: Yes (Hospitalization)
  Sender: FDA-Public Use
  Company Number: IT-BOEHRINGER INGELHEIM GMBH, GERMANY-2008-DE-01128GD

PATIENT
  Sex: Female

DRUGS (10)
  1. CLONIDINE [Suspect]
     Indication: DRUG DETOXIFICATION
     Dosage: 2 MCG/KG/H
     Route: 042
  2. MORPHINE [Suspect]
     Indication: NEURALGIA
     Route: 042
  3. MORPHINE [Suspect]
     Dosage: ESCALATING THE DOSE TO 100 MG
     Route: 042
  4. GABAPENTIN [Concomitant]
     Indication: NEURALGIA
  5. AMITRIPTYLINE HCL [Concomitant]
     Indication: NEURALGIA
  6. MIDAZOLAM HCL [Concomitant]
     Dosage: 0.1 MG/KG
     Route: 030
  7. RANITIDINE [Concomitant]
     Dosage: 3 MG/KG
     Route: 042
  8. OMEPRAZOLE [Concomitant]
  9. PROPOFOL [Concomitant]
     Indication: GENERAL ANAESTHESIA
     Dosage: 6 MG/KG/H AND TITRATED TO CLINICAL SIGNS OF ANESTHETIC ADEQUACY
     Route: 042
  10. NALOXONE [Concomitant]
     Indication: DRUG DETOXIFICATION
     Dosage: 0.01 MG/KG
     Route: 042

REACTIONS (6)
  - ANXIETY [None]
  - DRUG INEFFECTIVE [None]
  - DRUG TOLERANCE [None]
  - HYPERAESTHESIA [None]
  - HYPOTENSION [None]
  - SOMNOLENCE [None]
